FAERS Safety Report 10009020 (Version 1)
Quarter: 2014Q1

REPORT INFORMATION
  Report Type: Spontaneous
  Country: US (occurrence: None)
  Receive Date: 20140228
  Receipt Date: 20140228
  Transmission Date: 20141002
  Serious: Yes (Other)
  Sender: FDA-Public Use
  Company Number: 225311

PATIENT
  Age: 74 Year
  Sex: Male

DRUGS (4)
  1. PICATO GEL [Suspect]
     Indication: PRECANCEROUS SKIN LESION
     Dosage: (1 IN 1 D), TOPICAL
     Route: 061
     Dates: start: 20140111, end: 20140111
  2. FLOMAX (MORNIFLUMATE) [Concomitant]
  3. XANAX (ALPRAZOLAM) [Concomitant]
  4. LIDOCAIN PAIN (LIDOCAINE) (5 %) [Concomitant]

REACTIONS (13)
  - Application site pain [None]
  - Application site pain [None]
  - Application site erythema [None]
  - Application site exfoliation [None]
  - Application site dryness [None]
  - Application site vesicles [None]
  - Incorrect dose administered [None]
  - Inappropriate schedule of drug administration [None]
  - Incorrect drug administration duration [None]
  - Drug administered at inappropriate site [None]
  - Drug administration error [None]
  - Prescribed overdose [None]
  - Application site discolouration [None]
